FAERS Safety Report 9911906 (Version 2)
Quarter: 2014Q1

REPORT INFORMATION
  Report Type: Spontaneous
  Country: US (occurrence: US)
  Receive Date: 20140219
  Receipt Date: 20140219
  Transmission Date: 20141002
  Serious: No
  Sender: FDA-Public Use
  Company Number: US-MYLANLABS-2013S1017812

PATIENT
  Age: 30 Year
  Sex: Female
  Weight: 52.15 kg

DRUGS (4)
  1. EPIPEN [Suspect]
     Indication: ANAPHYLACTIC REACTION
     Dosage: 0.3 MG, AS NEEDED
     Route: 030
  2. EPIPEN [Suspect]
     Indication: FOOD ALLERGY
     Dosage: 0.3 MG, AS NEEDED
     Route: 030
  3. EPIPEN [Suspect]
     Indication: ANAPHYLACTIC REACTION
  4. EPIPEN [Suspect]
     Indication: FOOD ALLERGY

REACTIONS (1)
  - Tremor [Recovered/Resolved]
